FAERS Safety Report 11509500 (Version 1)
Quarter: 2015Q3

REPORT INFORMATION
  Report Type: Spontaneous
  Country: JP (occurrence: None)
  Receive Date: 20150915
  Receipt Date: 20150915
  Transmission Date: 20151125
  Serious: Yes (Death, Other)
  Sender: FDA-Public Use
  Company Number: JP-MDT-ADR-2015-01781

PATIENT
  Age: 44 Year
  Sex: Male

DRUGS (1)
  1. GABALON INTRATHECAL [Suspect]
     Active Substance: BACLOFEN
     Dosage: UNK

REACTIONS (5)
  - Respiratory arrest [None]
  - Vomiting [None]
  - Brain death [None]
  - Intracranial pressure increased [None]
  - Brain stem microhaemorrhage [None]
